FAERS Safety Report 15828824 (Version 1)
Quarter: 2019Q1

REPORT INFORMATION
  Report Type: Spontaneous
  Country: FR (occurrence: FR)
  Receive Date: 20190115
  Receipt Date: 20190115
  Transmission Date: 20190417
  Serious: Yes (Other)
  Sender: FDA-Public Use
  Company Number: PHHY2019FR003847

PATIENT
  Age: 36 Year
  Sex: Female

DRUGS (2)
  1. BENZYLPENICILLIN [Suspect]
     Active Substance: PENICILLIN G
     Indication: PRODUCT USED FOR UNKNOWN INDICATION
     Route: 065
  2. AMOXICILLIN + CLAVULANATE POTASSIUM [Suspect]
     Active Substance: AMOXICILLIN\CLAVULANATE POTASSIUM
     Indication: PYREXIA
     Route: 065

REACTIONS (4)
  - Maternal exposure during pregnancy [Unknown]
  - Clostridium difficile infection [Unknown]
  - Live birth [Unknown]
  - Pseudomembranous colitis [Unknown]
